FAERS Safety Report 10080407 (Version 2)
Quarter: 2014Q2

REPORT INFORMATION
  Report Type: Spontaneous
  Country: IT (occurrence: IT)
  Receive Date: 20140416
  Receipt Date: 20140501
  Transmission Date: 20141212
  Serious: Yes (Other)
  Sender: FDA-Public Use
  Company Number: IT-009507513-1404ITA008188

PATIENT
  Age: 68 Year
  Sex: Female

DRUGS (10)
  1. NITROGLYCERIN [Suspect]
     Indication: MYOCARDIAL ISCHAEMIA
     Dosage: 1 DOSE DAILY
     Route: 062
     Dates: start: 20131126, end: 20131226
  2. CARDIOASPIRIN [Concomitant]
     Route: 048
  3. SELOKEN [Concomitant]
     Dosage: 1 DOSE (UNIT)
     Route: 048
  4. LANSOPRAZOLE [Concomitant]
     Route: 048
  5. L-THYROXIN [Concomitant]
     Route: 048
  6. METFORMIN [Concomitant]
     Route: 048
  7. RAMIPRIL [Concomitant]
     Route: 048
  8. AMLODIPINE [Concomitant]
     Route: 048
  9. ATORVASTATIN [Concomitant]
     Route: 048
  10. ALLOPURINOL [Concomitant]

REACTIONS (4)
  - Urticaria [Recovering/Resolving]
  - Dermatitis bullous [Recovering/Resolving]
  - Pruritus [Recovering/Resolving]
  - Urticaria [Recovering/Resolving]
